FAERS Safety Report 18397976 (Version 1)
Quarter: 2020Q4

REPORT INFORMATION
  Report Type: Spontaneous
  Country: US (occurrence: US)
  Receive Date: 20201019
  Receipt Date: 20201019
  Transmission Date: 20210114
  Serious: Yes (Hospitalization)
  Sender: FDA-Public Use
  Company Number: None

PATIENT
  Age: 41 Year
  Sex: Male
  Weight: 87 kg

DRUGS (1)
  1. SULFAMETHOXAZOLE/TRIMETHOPRIM (SULFAMETHOXAZOLE 800MG/TRIMETHOPRIM 160 [Suspect]
     Active Substance: SULFAMETHOXAZOLE\TRIMETHOPRIM
     Indication: SKIN BACTERIAL INFECTION
     Route: 048
     Dates: start: 20200828, end: 20200901

REACTIONS (9)
  - Hepatic enzyme increased [None]
  - Malaise [None]
  - Rash [None]
  - Chills [None]
  - Pruritus [None]
  - Erythema multiforme [None]
  - Erythema [None]
  - Pyrexia [None]
  - Urticaria [None]

NARRATIVE: CASE EVENT DATE: 20200902
